FAERS Safety Report 4303141-2 (Version None)
Quarter: 2004Q1

REPORT INFORMATION
  Report Type: 
  Country: None (occurrence: None)
  Receive Date: 20040224
  Receipt Date: 20040212
  Transmission Date: 20041129
  Serious: Yes (Death, Hospitalization, Other)
  Sender: FDA-Public Use
  Company Number: FR-BRISTOL-MYERS SQUIBB COMPANY-12508727

PATIENT
  Age: 73 Year
  Sex: Female

DRUGS (13)
  1. GLUCOPHAGE [Suspect]
     Route: 048
  2. TRIFLUCAN [Suspect]
     Route: 048
     Dates: end: 20040121
  3. NOVONORM [Suspect]
  4. TRIMEPRAZINE TAB [Suspect]
     Route: 048
  5. ZOLOFT [Suspect]
     Route: 048
  6. CLOZAPINE [Suspect]
     Route: 048
  7. HEPT-A-MYL [Concomitant]
     Dates: end: 20040121
  8. PERIDYS [Concomitant]
     Dates: end: 20040121
  9. PHOSPHALUGEL [Concomitant]
     Dates: end: 20040121
  10. ULCAR [Concomitant]
     Dates: end: 20040121
  11. FORLAX [Concomitant]
     Dates: end: 20040121
  12. FERROGRAD [Concomitant]
  13. GAVISCON [Concomitant]
     Dates: end: 20040121

REACTIONS (7)
  - ANAEMIA [None]
  - GENERAL PHYSICAL HEALTH DETERIORATION [None]
  - INFLAMMATION [None]
  - LUNG INFECTION [None]
  - OESOPHAGITIS [None]
  - THROMBOCYTOPENIA [None]
  - VOMITING [None]
